FAERS Safety Report 14368976 (Version 1)
Quarter: 2018Q1

REPORT INFORMATION
  Report Type: Spontaneous
  Country: US (occurrence: US)
  Receive Date: 20180109
  Receipt Date: 20180109
  Transmission Date: 20180509
  Serious: Yes (Other)
  Sender: FDA-Public Use
  Company Number: US-ASTRAZENECA-2018SE02378

PATIENT
  Sex: Female
  Weight: 65.3 kg

DRUGS (10)
  1. WARFARIN [Concomitant]
     Active Substance: WARFARIN
     Indication: CEREBROVASCULAR ACCIDENT
     Dosage: DURING MAY-2016 WAS 1.25 MILLIGRAM ONCE DAILY TWO TIMES A WEEK (TUESDAY AND FRIDAY)
     Dates: start: 201605
  2. WARFARIN [Concomitant]
     Active Substance: WARFARIN
     Indication: TRANSIENT ISCHAEMIC ATTACK
     Dosage: 2.5 MILLIGRAM DAILY FOR ALL OTHER DAYS.
  3. LYNPARZA [Suspect]
     Active Substance: OLAPARIB
     Indication: FALLOPIAN TUBE CANCER
     Route: 048
  4. LYNPARZA [Suspect]
     Active Substance: OLAPARIB
     Indication: BRCA1 GENE MUTATION
     Route: 048
  5. WARFARIN [Concomitant]
     Active Substance: WARFARIN
     Indication: CEREBROVASCULAR ACCIDENT
     Dates: start: 201109
  6. WARFARIN [Concomitant]
     Active Substance: WARFARIN
     Indication: TRANSIENT ISCHAEMIC ATTACK
     Dates: start: 201109
  7. LYNPARZA [Suspect]
     Active Substance: OLAPARIB
     Indication: BRCA1 GENE MUTATION
     Route: 048
  8. WARFARIN [Concomitant]
     Active Substance: WARFARIN
     Indication: TRANSIENT ISCHAEMIC ATTACK
     Dosage: DURING MAY-2016 WAS 1.25 MILLIGRAM ONCE DAILY TWO TIMES A WEEK (TUESDAY AND FRIDAY)
     Dates: start: 201605
  9. LYNPARZA [Suspect]
     Active Substance: OLAPARIB
     Indication: FALLOPIAN TUBE CANCER
     Route: 048
  10. WARFARIN [Concomitant]
     Active Substance: WARFARIN
     Indication: CEREBROVASCULAR ACCIDENT
     Dosage: 2.5 MILLIGRAM DAILY FOR ALL OTHER DAYS.

REACTIONS (5)
  - Crohn^s disease [Unknown]
  - Short-bowel syndrome [Unknown]
  - Recurrent cancer [Not Recovered/Not Resolved]
  - Malabsorption [Unknown]
  - Product use in unapproved indication [Not Recovered/Not Resolved]
